FAERS Safety Report 7872467-8 (Version None)
Quarter: 2011Q4

REPORT INFORMATION
  Report Type: 
  Country: None (occurrence: None)
  Receive Date: 20111030
  Receipt Date: 20110426
  Transmission Date: 20120403
  Serious: No
  Sender: FDA-Public Use
  Company Number: US-AMGEN-USASP2011021642

PATIENT
  Sex: Male

DRUGS (1)
  1. ENBREL [Suspect]
     Indication: MIXED CONNECTIVE TISSUE DISEASE
     Dosage: UNK
     Dates: start: 20110323

REACTIONS (1)
  - INJURY ASSOCIATED WITH DEVICE [None]
